FAERS Safety Report 25855510 (Version 1)
Quarter: 2025Q3

REPORT INFORMATION
  Report Type: Spontaneous
  Country: CN (occurrence: CN)
  Receive Date: 20250927
  Receipt Date: 20250927
  Transmission Date: 20251021
  Serious: Yes (Death, Life-Threatening, Other)
  Sender: AMGEN
  Company Number: CN-AMGEN-CHNSP2025189864

PATIENT
  Age: 39 Year
  Sex: Female

DRUGS (22)
  1. FILGRASTIM [Suspect]
     Active Substance: FILGRASTIM
     Indication: Haematopoietic stem cell mobilisation
     Dosage: 10 MICROGRAM/KILOGRAM, QD FOR 5 DAYS
     Route: 058
  2. BLINATUMOMAB [Suspect]
     Active Substance: BLINATUMOMAB
     Indication: B-cell type acute leukaemia
     Route: 065
  3. PLERIXAFOR [Suspect]
     Active Substance: PLERIXAFOR
     Indication: Autologous haematopoietic stem cell transplant
     Route: 065
  4. VINDESINE [Concomitant]
     Active Substance: VINDESINE
     Indication: Prophylaxis
  5. IDARUBICIN [Concomitant]
     Active Substance: IDARUBICIN
     Indication: Chemotherapy
     Dosage: 10 MILLIGRAM, ON DAYS 1-3, QD
  6. CYCLOPHOSPHAMIDE [Concomitant]
     Active Substance: CYCLOPHOSPHAMIDE
     Indication: Prophylaxis
  7. PREDNISONE [Concomitant]
     Active Substance: PREDNISONE
     Indication: Prophylaxis
     Dosage: 60 MILLIGRAM, ON DAYS 1-28, QD
  8. METHOTREXATE [Concomitant]
     Active Substance: METHOTREXATE
  9. CYTARABINE [Concomitant]
     Active Substance: CYTARABINE
  10. DOXORUBICIN [Concomitant]
     Active Substance: DOXORUBICIN
  11. DEXAMETHASONE [Concomitant]
     Active Substance: DEXAMETHASONE
  12. SELINEXOR [Concomitant]
     Active Substance: SELINEXOR
     Dosage: 40 MILLIGRAM, QWK
  13. TUCIDINOSTAT [Concomitant]
     Active Substance: TUCIDINOSTAT
     Dosage: 60 MILLIGRAM, QWK,  ADMINISTERED FOR ONE MONTH
  14. MITOXANTRONE [Concomitant]
     Active Substance: MITOXANTRONE HYDROCHLORIDE
  15. ETOPOSIDE [Concomitant]
     Active Substance: ETOPOSIDE
  16. FLUDARABINE [Concomitant]
     Active Substance: FLUDARABINE PHOSPHATE
  17. THIOTEPA [Concomitant]
     Active Substance: THIOTEPA
  18. CLADRIBINE [Concomitant]
     Active Substance: CLADRIBINE
     Dosage: 5 MILLIGRAM/SQ. METER, QD FOR 4 DAY
  19. BUSULFAN [Concomitant]
     Active Substance: BUSULFAN
     Dosage: 3.2 MILLIGRAM/KILOGRAM, QD FOR 4 DAYS
     Route: 040
  20. MELPHALAN [Concomitant]
     Active Substance: MELPHALAN
     Route: 040
  21. CYCLOSPORINE [Concomitant]
     Active Substance: CYCLOSPORINE
     Indication: Prophylaxis
  22. MYCOPHENOLATE MOFETIL [Concomitant]
     Active Substance: MYCOPHENOLATE MOFETIL
     Indication: Prophylaxis

REACTIONS (7)
  - Pneumonia [Fatal]
  - Acute lymphocytic leukaemia recurrent [Unknown]
  - Cytomegalovirus viraemia [Not Recovered/Not Resolved]
  - B-cell aplasia [Unknown]
  - Blood bilirubin increased [Recovered/Resolved]
  - Transaminases increased [Recovered/Resolved]
  - Blood stem cell harvest failure [Unknown]
